FAERS Safety Report 4444149-6 (Version None)
Quarter: 2004Q3

REPORT INFORMATION
  Report Type: 
  Country: None (occurrence: None)
  Receive Date: 20040812
  Receipt Date: 20040603
  Transmission Date: 20050211
  Serious: Yes (Hospitalization, Other)
  Sender: FDA-Public Use
  Company Number: US_011074951

PATIENT
  Age: 41 Year
  Sex: Male
  Weight: 150 kg

DRUGS (4)
  1. HUMULIN R [Suspect]
     Indication: DIABETES MELLITUS
     Dosage: 40 U DAY
     Dates: start: 19850101
  2. HUMULIN L [Suspect]
     Indication: DIABETES MELLITUS
     Dosage: 80 U DAY
     Dates: start: 19850101
  3. HUMALOG [Suspect]
     Indication: DIABETES MELLITUS
     Dosage: 85 U DAY
     Dates: start: 19960101
  4. INSULIN [Suspect]
     Dates: start: 19700101, end: 19850101

REACTIONS (12)
  - BLINDNESS [None]
  - BLOOD GLUCOSE DECREASED [None]
  - BLOOD GLUCOSE INCREASED [None]
  - CARPAL TUNNEL SYNDROME [None]
  - INSULIN RESISTANCE [None]
  - LOSS OF CONSCIOUSNESS [None]
  - MACULAR DEGENERATION [None]
  - NEUROPATHY [None]
  - POLYNEUROPATHY [None]
  - RETINOPATHY [None]
  - ROAD TRAFFIC ACCIDENT [None]
  - VISUAL ACUITY REDUCED [None]
